FAERS Safety Report 4537251-1 (Version None)
Quarter: 2004Q4

REPORT INFORMATION
  Report Type: 
  Country: None (occurrence: None)
  Receive Date: 20041223
  Receipt Date: 20041221
  Transmission Date: 20050328
  Serious: Yes (Other)
  Sender: FDA-Public Use
  Company Number: PHEH2004US13521

PATIENT
  Age: 43 Year
  Sex: Male

DRUGS (4)
  1. LOZOL [Concomitant]
     Indication: DIURETIC THERAPY
  2. PREVACID [Concomitant]
  3. VIVACTIL [Concomitant]
     Indication: DEPRESSION
     Dates: start: 20041001
  4. DIOVAN [Suspect]
     Indication: HYPERTENSION
     Dosage: 160 MG, UNK
     Route: 048
     Dates: start: 20040901

REACTIONS (2)
  - DEPRESSION [None]
  - SUICIDAL IDEATION [None]
